FAERS Safety Report 11779433 (Version 3)
Quarter: 2016Q2

REPORT INFORMATION
  Report Type: Spontaneous
  Country: None (occurrence: US)
  Receive Date: 20151125
  Receipt Date: 20160602
  Transmission Date: 20160815
  Serious: No
  Sender: FDA-Public Use
  Company Number: US-SA-2015SA178158

PATIENT
  Age: 13 Year
  Sex: Male
  Weight: 49.94 kg

DRUGS (3)
  1. AUVI-Q [Suspect]
     Active Substance: EPINEPHRINE
     Indication: HYPERSENSITIVITY
  2. AUVI-Q [Suspect]
     Active Substance: EPINEPHRINE
     Indication: ANAPHYLACTIC SHOCK
     Dosage: ONCE IM OR SC
     Dates: start: 20150523, end: 20150523
  3. ALBUTEROL. [Concomitant]
     Active Substance: ALBUTEROL
     Indication: ASTHMA

REACTIONS (1)
  - No adverse event [None]

NARRATIVE: CASE EVENT DATE: 20150523
